FAERS Safety Report 15108167 (Version 2)
Quarter: 2018Q3

REPORT INFORMATION
  Report Type: Report from Study
  Country: None (occurrence: US)
  Receive Date: 20180705
  Receipt Date: 20180717
  Transmission Date: 20181010
  Serious: Yes (Other)
  Sender: FDA-Public Use
  Company Number: US-ABBVIE-18K-163-2407922-00

PATIENT
  Age: 45 Year
  Sex: Female

DRUGS (1)
  1. HUMIRA [Suspect]
     Active Substance: ADALIMUMAB
     Indication: PSORIASIS
     Route: 058
     Dates: start: 201801

REACTIONS (6)
  - Ankle fracture [Unknown]
  - Arthralgia [Recovering/Resolving]
  - Injection site urticaria [Unknown]
  - Injection site bruising [Unknown]
  - Psoriasis [Unknown]
  - Impaired healing [Unknown]

NARRATIVE: CASE EVENT DATE: 2018
